FAERS Safety Report 8244438-3 (Version None)
Quarter: 2012Q1

REPORT INFORMATION
  Report Type: 
  Country: None (occurrence: None)
  Receive Date: 20120329
  Receipt Date: 20120320
  Transmission Date: 20120608
  Serious: Yes (Hospitalization)
  Sender: FDA-Public Use
  Company Number: NL-PFIZER INC-2012061614

PATIENT
  Age: 58 Year
  Sex: Male
  Weight: 80 kg

DRUGS (4)
  1. ARTHROTEC [Suspect]
     Indication: MYALGIA
     Dosage: 75 MG, 1X/DAY
     Route: 048
     Dates: start: 20110101, end: 20120303
  2. TRAMADOL HCL [Suspect]
     Indication: MYALGIA
     Dosage: 50 MG, 1X/DAY
     Route: 048
     Dates: start: 20110101, end: 20120201
  3. PANTOPRAZOLE [Suspect]
     Indication: DYSPEPSIA
     Dosage: 40 MG, 1X/DAY
     Route: 048
     Dates: start: 20110101
  4. TAMSULOSIN HYDROCHLORIDE [Suspect]
     Indication: BENIGN PROSTATIC HYPERPLASIA
     Dosage: 0.4 MG, 1X/DAY
     Route: 048
     Dates: start: 20110101

REACTIONS (5)
  - HYPERSENSITIVITY [None]
  - LIP SWELLING [None]
  - URTICARIA [None]
  - MALAISE [None]
  - DYSPNOEA [None]
